FAERS Safety Report 4921614-6 (Version None)
Quarter: 2006Q1

REPORT INFORMATION
  Report Type: 
  Country: None (occurrence: None)
  Receive Date: 20060224
  Receipt Date: 20060208
  Transmission Date: 20060701
  Serious: Yes (Other)
  Sender: FDA-Public Use
  Company Number: 2006AP00773

PATIENT
  Age: 35 Year
  Sex: Female

DRUGS (4)
  1. DIPRIVAN [Suspect]
     Indication: INDUCTION AND MAINTENANCE OF ANAESTHESIA
     Route: 042
  2. ANAPEINE [Suspect]
     Indication: EPIDURAL ANAESTHESIA
     Route: 008
  3. FENTANYL CITRATE [Concomitant]
     Indication: INDUCTION OF ANAESTHESIA
     Route: 042
  4. VECURONIUM BROMIDE [Concomitant]
     Indication: INDUCTION OF ANAESTHESIA
     Route: 042

REACTIONS (3)
  - DRUG EXPOSURE DURING PREGNANCY [None]
  - FOETAL HEART RATE DECREASED [None]
  - UTERINE CONTRACTIONS ABNORMAL [None]
